FAERS Safety Report 16215315 (Version 1)
Quarter: 2019Q2

REPORT INFORMATION
  Report Type: Spontaneous
  Country: US (occurrence: US)
  Receive Date: 20190419
  Receipt Date: 20190419
  Transmission Date: 20190711
  Serious: Yes (Other)
  Sender: FDA-Public Use
  Company Number: US-AMGEN-USASP2019060602

PATIENT
  Age: 66 Year
  Sex: Male
  Weight: 85.7 kg

DRUGS (1)
  1. PROCRIT [Suspect]
     Active Substance: ERYTHROPOIETIN
     Indication: CHRONIC KIDNEY DISEASE
     Dosage: 20000 UNIT, QMO
     Route: 065

REACTIONS (2)
  - Anaemia [Not Recovered/Not Resolved]
  - Coronary artery disease [Not Recovered/Not Resolved]
